FAERS Safety Report 17630165 (Version 3)
Quarter: 2020Q2

REPORT INFORMATION
  Report Type: Report from Study
  Country: CA (occurrence: CA)
  Receive Date: 20200406
  Receipt Date: 20200421
  Transmission Date: 20200713
  Serious: Yes (Other)
  Sender: FDA-Public Use
  Company Number: CA-JNJFOC-20200339696

PATIENT
  Age: 10 Year
  Sex: Female
  Weight: 35.4 kg

DRUGS (3)
  1. REMICADE [Suspect]
     Active Substance: INFLIXIMAB
     Indication: CROHN^S DISEASE
     Dosage: LAST INFUSION ON 24-MAR-2020
     Route: 042
  2. REMICADE [Suspect]
     Active Substance: INFLIXIMAB
     Route: 042
     Dates: start: 20200211
  3. REMICADE [Suspect]
     Active Substance: INFLIXIMAB
     Route: 042

REACTIONS (6)
  - Infusion related reaction [Recovered/Resolved]
  - Product use issue [Unknown]
  - Rash [Unknown]
  - Off label use [Unknown]
  - Swelling face [Unknown]
  - Headache [Unknown]

NARRATIVE: CASE EVENT DATE: 202003
